FAERS Safety Report 18084615 (Version 1)
Quarter: 2020Q3

REPORT INFORMATION
  Report Type: Report from Study
  Country: US (occurrence: US)
  Receive Date: 20200729
  Receipt Date: 20200729
  Transmission Date: 20201103
  Serious: Yes (Life-Threatening, Other)
  Sender: FDA-Public Use
  Company Number: US-AUROBINDO-AUR-APL-2020-036124

PATIENT

DRUGS (1)
  1. EVOMELA [Suspect]
     Active Substance: MELPHALAN HYDROCHLORIDE
     Indication: PRIMARY AMYLOIDOSIS
     Dosage: UNK
     Route: 065

REACTIONS (17)
  - CD4 lymphocytes decreased [Not Recovered/Not Resolved]
  - Chronic kidney disease [Recovered/Resolved]
  - Dysgeusia [Not Recovered/Not Resolved]
  - Anaemia [Not Recovered/Not Resolved]
  - Uveitis [Recovered/Resolved]
  - Eye pain [Recovered/Resolved]
  - Photophobia [Recovered/Resolved]
  - Dehydration [Recovered/Resolved]
  - Hypophosphataemia [Not Recovered/Not Resolved]
  - Bone pain [Recovered/Resolved]
  - White blood cell count [Not Recovered/Not Resolved]
  - Blood alkaline phosphatase [Recovered/Resolved]
  - Aspartate aminotransferase [Recovered/Resolved]
  - Platelet count decreased [Not Recovered/Not Resolved]
  - Diarrhoea [Recovered/Resolved]
  - Dizziness [Recovered/Resolved]
  - Hypomagnesaemia [Recovered/Resolved]

NARRATIVE: CASE EVENT DATE: 20181108
